FAERS Safety Report 26033534 (Version 2)
Quarter: 2025Q4

REPORT INFORMATION
  Report Type: Spontaneous
  Country: JP (occurrence: JP)
  Receive Date: 20251112
  Receipt Date: 20251201
  Transmission Date: 20260117
  Serious: Yes (Other)
  Sender: MYLAN
  Company Number: JP-MYE-2025M1094153AA

PATIENT
  Age: 56 Year
  Sex: Male

DRUGS (2)
  1. CYCLOSPORINE [Suspect]
     Active Substance: CYCLOSPORINE
     Indication: Immunosuppressant drug therapy
     Dosage: 2.5?MG/KG/DAY
  2. CYCLOSPORINE [Suspect]
     Active Substance: CYCLOSPORINE
     Indication: Psoriasis

REACTIONS (4)
  - Epstein-Barr virus associated lymphoma [Recovering/Resolving]
  - Hodgkin^s disease [Recovering/Resolving]
  - Lymphoproliferative disorder [Recovering/Resolving]
  - Hepatosplenomegaly [Recovering/Resolving]
